FAERS Safety Report 8007776-5 (Version None)
Quarter: 2011Q4

REPORT INFORMATION
  Report Type: 
  Country: None (occurrence: None)
  Receive Date: 20111227
  Receipt Date: 20110614
  Transmission Date: 20120403
  Serious: No
  Sender: FDA-Public Use
  Company Number: US-ABBOTT-11P-163-0732770-00

PATIENT
  Age: 10 Year
  Sex: Female

DRUGS (2)
  1. LUPRON DEPOT [Suspect]
     Indication: PRECOCIOUS PUBERTY
     Dates: start: 20091101
  2. LUPRON DEPOT [Suspect]
     Dates: start: 20110101

REACTIONS (6)
  - INJECTION SITE ERYTHEMA [None]
  - ARTHRITIS [None]
  - INJECTION SITE SWELLING [None]
  - HYPERSENSITIVITY [None]
  - NONSPECIFIC REACTION [None]
  - PYREXIA [None]
